FAERS Safety Report 5118209-0 (Version None)
Quarter: 2006Q4

REPORT INFORMATION
  Report Type: 
  Country: None (occurrence: None)
  Receive Date: 20061002
  Receipt Date: 20060922
  Transmission Date: 20070319
  Serious: Yes (Life-Threatening)
  Sender: FDA-Public Use
  Company Number: DE-BAYER-200611256BVD

PATIENT
  Age: 45 Year
  Sex: Male
  Weight: 93 kg

DRUGS (2)
  1. ASPIRIN [Suspect]
     Indication: HEADACHE
     Route: 048
     Dates: start: 20051215, end: 20060212
  2. RENNIE [Suspect]
     Indication: DYSPEPSIA
     Route: 048
     Dates: start: 20051215, end: 20060212

REACTIONS (1)
  - HAEMOLYTIC ANAEMIA [None]
